FAERS Safety Report 10162098 (Version 2)
Quarter: 2014Q2

REPORT INFORMATION
  Report Type: Spontaneous
  Country: US (occurrence: None)
  Receive Date: 20140507
  Receipt Date: 20140515
  Transmission Date: 20141212
  Serious: Yes (Other)
  Sender: FDA-Public Use
  Company Number: 2014-US-005364

PATIENT
  Age: 57 Year
  Sex: Male

DRUGS (4)
  1. PRIALT (ZICONOTIDE ACETATE) INTRATHECAL INFUSION, UG/ML [Suspect]
     Indication: CANCER PAIN
     Route: 037
     Dates: end: 20140426
  2. FENTANYL (FENTANYL) INJECTION [Suspect]
     Indication: CANCER PAIN
     Route: 037
     Dates: end: 20140426
  3. CLONIDINE (CLONIDINE) INJECTION [Suspect]
     Indication: CANCER PAIN
     Route: 037
     Dates: end: 20140426
  4. DILAUDID (HYDROMORPHONE HYDROCHLORIDE) INJECTION [Suspect]
     Indication: CANCER PAIN
     Route: 037
     Dates: end: 20140426

REACTIONS (2)
  - Metastases to central nervous system [None]
  - Convulsion [None]
